FAERS Safety Report 23028844 (Version 2)
Quarter: 2023Q4

REPORT INFORMATION
  Report Type: Spontaneous
  Country: US (occurrence: US)
  Receive Date: 20231004
  Receipt Date: 20231016
  Transmission Date: 20240109
  Serious: Yes (Hospitalization)
  Sender: FDA-Public Use
  Company Number: US-TEVA-2023-US-2930654

PATIENT
  Sex: Male

DRUGS (1)
  1. ALLOPURINOL [Suspect]
     Active Substance: ALLOPURINOL
     Indication: Product used for unknown indication
     Route: 065

REACTIONS (9)
  - Stevens-Johnson syndrome [Unknown]
  - Conjunctivitis [Recovering/Resolving]
  - Conjunctival scar [Recovering/Resolving]
  - Visual impairment [Recovering/Resolving]
  - Conjunctivitis bacterial [Recovering/Resolving]
  - Keratitis [Recovering/Resolving]
  - Corneal epithelium defect [Recovering/Resolving]
  - Fusarium infection [Recovering/Resolving]
  - Ulcerative keratitis [Recovering/Resolving]
